FAERS Safety Report 20412664 (Version 1)
Quarter: 2022Q1

REPORT INFORMATION
  Report Type: Report from Study
  Country: US (occurrence: None)
  Receive Date: 20220201
  Receipt Date: 20220201
  Transmission Date: 20220424
  Serious: Yes (Hospitalization, Other)
  Sender: FDA-Public Use
  Company Number: US-ROCHE-2432230

PATIENT
  Age: 53 Year
  Sex: Female
  Weight: 98.1 kg

DRUGS (3)
  1. ATEZOLIZUMAB [Suspect]
     Active Substance: ATEZOLIZUMAB
     Indication: Triple negative breast cancer
     Dosage: LAST DOSE 1200 MG ADMINISTERED ON 12/SEP/2019
     Route: 041
     Dates: start: 20190912
  2. OLAPARIB [Suspect]
     Active Substance: OLAPARIB
     Indication: Triple negative breast cancer
     Dosage: LAST DOSE ADMINISTERED ON 24/SEP/2019
     Route: 048
     Dates: start: 20190912, end: 20190924
  3. VALACYCLOVIR [Concomitant]
     Active Substance: VALACYCLOVIR HYDROCHLORIDE

REACTIONS (2)
  - Pyrexia [Recovered/Resolved]
  - Anaemia [Unknown]

NARRATIVE: CASE EVENT DATE: 20190924
